FAERS Safety Report 26197861 (Version 1)
Quarter: 2025Q4

REPORT INFORMATION
  Report Type: Spontaneous
  Country: EU (occurrence: EU)
  Receive Date: 20251224
  Receipt Date: 20251224
  Transmission Date: 20260117
  Serious: Yes (Other)
  Sender: NOVO NORDISK
  Company Number: EU-NOVOPROD-1588491

PATIENT
  Age: 68 Year

DRUGS (1)
  1. NOVOSEVEN [Suspect]
     Active Substance: COAGULATION FACTOR VIIA RECOMBINANT HUMAN
     Indication: Acquired haemophilia
     Dosage: UNK

REACTIONS (3)
  - Haemorrhagic diathesis [Unknown]
  - Activated partial thromboplastin time prolonged [Unknown]
  - Drug ineffective [Unknown]
